FAERS Safety Report 7459861-4 (Version None)
Quarter: 2011Q2

REPORT INFORMATION
  Report Type: 
  Country: None (occurrence: None)
  Receive Date: 20110504
  Receipt Date: 20110504
  Transmission Date: 20111010
  Serious: Yes (Hospitalization, Other)
  Sender: FDA-Public Use
  Company Number: None

PATIENT
  Age: 78 Year
  Sex: Male
  Weight: 47.1741 kg

DRUGS (1)
  1. PANTAPROZOLE SODIUM [Suspect]
     Indication: GASTROINTESTINAL HAEMORRHAGE
     Dosage: 8MG/HR CONTINUOUS IV DRIP
     Route: 041
     Dates: start: 20110426, end: 20110429

REACTIONS (1)
  - LEUKOPENIA [None]
